FAERS Safety Report 9418691 (Version 1)
Quarter: 2013Q3

REPORT INFORMATION
  Report Type: Spontaneous
  Country: IN (occurrence: IN)
  Receive Date: 20130725
  Receipt Date: 20130725
  Transmission Date: 20140515
  Serious: Yes (Hospitalization)
  Sender: FDA-Public Use
  Company Number: IN-ACCORD-018633

PATIENT
  Age: 58 Year
  Sex: Male

DRUGS (9)
  1. GLYCOPYRROLATE [Concomitant]
     Indication: PREMEDICATION
  2. ATRACURIUM [Concomitant]
  3. SUCCINYLCHOLINE [Concomitant]
     Indication: PREMEDICATION
  4. ONDANSETRON [Concomitant]
     Indication: PREMEDICATION
  5. AMLODIPINE [Suspect]
     Indication: HYPERTENSION
     Dosage: IN THE MORNING
  6. ISOFLURANE [Concomitant]
  7. RANITIDINE [Concomitant]
     Indication: PREMEDICATION
  8. FENTANYL [Concomitant]
     Indication: PREMEDICATION
     Route: 042
  9. THIOPENTONE SODIUM [Concomitant]
     Indication: PREMEDICATION

REACTIONS (2)
  - Procedural hypotension [Recovered/Resolved]
  - Metabolic acidosis [Recovered/Resolved]
